FAERS Safety Report 4451832-5 (Version None)
Quarter: 2004Q3

REPORT INFORMATION
  Report Type: 
  Country: None (occurrence: None)
  Receive Date: 20040915
  Receipt Date: 20040915
  Transmission Date: 20050211
  Serious: Yes (Hospitalization)
  Sender: FDA-Public Use
  Company Number: None

PATIENT
  Age: 61 Year
  Sex: Male
  Weight: 105 kg

DRUGS (1)
  1. OXALIPLATIN 110 MG / DS 500 [Suspect]
     Indication: COLON CANCER STAGE III
     Dosage: 110 MG IV X 1
     Route: 042
     Dates: start: 20030828, end: 20040122

REACTIONS (10)
  - DYSGEUSIA [None]
  - EYE ROLLING [None]
  - FAECAL INCONTINENCE [None]
  - FEELING HOT [None]
  - LOSS OF CONSCIOUSNESS [None]
  - MUSCLE TIGHTNESS [None]
  - PARAESTHESIA [None]
  - PARAESTHESIA ORAL [None]
  - SALIVARY HYPERSECRETION [None]
  - URINARY INCONTINENCE [None]
